FAERS Safety Report 10936145 (Version 3)
Quarter: 2015Q3

REPORT INFORMATION
  Report Type: Report from Study
  Country: IT (occurrence: IT)
  Receive Date: 20150320
  Receipt Date: 20150701
  Transmission Date: 20151125
  Serious: Yes (Death, Life-Threatening, Hospitalization)
  Sender: FDA-Public Use
  Company Number: IT-CELGENE-ITA-2015032964

PATIENT
  Age: 69 Year
  Sex: Female
  Weight: 64 kg

DRUGS (7)
  1. ABRAXANE [Suspect]
     Active Substance: PACLITAXEL
     Route: 041
     Dates: start: 20150304, end: 20150313
  2. GEMCITABINE [Suspect]
     Active Substance: GEMCITABINE\GEMCITABINE HYDROCHLORIDE
     Route: 041
     Dates: start: 20150304, end: 20150313
  3. METHYLPREDNISOLONE. [Suspect]
     Active Substance: METHYLPREDNISOLONE
     Indication: CONTRAST MEDIA ALLERGY
     Route: 048
     Dates: start: 20150303, end: 20150307
  4. RANITIDINE [Concomitant]
     Active Substance: RANITIDINE\RANITIDINE HYDROCHLORIDE
     Indication: CONTRAST MEDIA ALLERGY
     Route: 048
     Dates: start: 20150303, end: 20150307
  5. ABRAXANE [Suspect]
     Active Substance: PACLITAXEL
     Indication: BREAST CANCER
     Route: 041
     Dates: start: 20150121, end: 20150210
  6. GEMCITABINE [Suspect]
     Active Substance: GEMCITABINE\GEMCITABINE HYDROCHLORIDE
     Indication: BREAST CANCER
     Route: 041
     Dates: start: 20150121, end: 20150210
  7. ZYRTEC [Concomitant]
     Active Substance: CETIRIZINE HYDROCHLORIDE
     Indication: CONTRAST MEDIA ALLERGY
     Route: 048
     Dates: start: 20150303, end: 20150306

REACTIONS (3)
  - Sepsis [Fatal]
  - Respiratory failure [Fatal]
  - Haematemesis [Recovered/Resolved]

NARRATIVE: CASE EVENT DATE: 20150312
